FAERS Safety Report 8687421 (Version 2)
Quarter: 2012Q4

REPORT INFORMATION
  Report Type: 
  Country: US (occurrence: US)
  Receive Date: 20120727
  Receipt Date: 20121005
  Transmission Date: 20130627
  Serious: Yes (Death, Other)
  Sender: FDA-Public Use
  Company Number: US-PFIZER INC-2012180225

PATIENT
  Age: 70 Year
  Sex: Female
  Weight: 59.4 kg

DRUGS (1)
  1. XALKORI [Suspect]
     Indication: LUNG NEOPLASM MALIGNANT
     Dosage: 200 mg, 2x/day
     Dates: start: 20120601, end: 20120619

REACTIONS (3)
  - Disease progression [Fatal]
  - Lung neoplasm malignant [Fatal]
  - Candidiasis [Unknown]
